FAERS Safety Report 9605120 (Version 6)
Quarter: 2014Q2

REPORT INFORMATION
  Report Type: Report from Study
  Country: AT (occurrence: AT)
  Receive Date: 20131008
  Receipt Date: 20140429
  Transmission Date: 20141212
  Serious: Yes (Hospitalization, Other)
  Sender: FDA-Public Use
  Company Number: AT-CELGENEUS-009-21880-13094194

PATIENT
  Age: 64 Year
  Sex: Female
  Weight: 75 kg

DRUGS (10)
  1. REVLIMID [Suspect]
     Indication: PLASMA CELL MYELOMA
     Dosage: 25 MILLIGRAM
     Route: 048
     Dates: start: 20130624, end: 20130812
  2. VELCADE [Suspect]
     Indication: PLASMA CELL MYELOMA
     Dosage: 2.5MG
     Route: 058
     Dates: start: 20130624, end: 20130806
  3. VELCADE [Suspect]
     Route: 065
     Dates: start: 20120801, end: 20121002
  4. VELCADE [Suspect]
     Route: 065
     Dates: start: 20121203, end: 20130521
  5. DEXAMETHASONE [Suspect]
     Indication: PLASMA CELL MYELOMA
     Dosage: 20 MILLIGRAM
     Route: 048
     Dates: start: 20130621, end: 20130807
  6. DEXAMETHASONE [Suspect]
     Route: 065
     Dates: start: 20120801, end: 20121002
  7. XARELTO [Concomitant]
     Indication: THROMBOSIS PROPHYLAXIS
     Dosage: 20 MILLIGRAM
     Route: 065
  8. ACCMIN [Concomitant]
     Indication: HYPERTENSION
     Dosage: 70 MILLIGRAM
     Route: 065
  9. LANSOBENE [Concomitant]
     Indication: PROPHYLAXIS
     Dosage: 30 MILLIGRAM
     Route: 065
  10. XEFO [Concomitant]
     Indication: PAIN
     Route: 065

REACTIONS (1)
  - Follicular thyroid cancer [Recovered/Resolved]
